FAERS Safety Report 5528028-9 (Version None)
Quarter: 2007Q4

REPORT INFORMATION
  Report Type: 
  Country: None (occurrence: None)
  Receive Date: 20071113
  Receipt Date: 20070427
  Transmission Date: 20080405
  Serious: Yes (Other)
  Sender: FDA-Public Use
  Company Number: 2007-BP-05908BP

PATIENT
  Sex: Female

DRUGS (1)
  1. MICARDIS [Suspect]
     Dosage: PO
     Route: 048

REACTIONS (4)
  - ANGIOEDEMA [None]
  - HYPOAESTHESIA [None]
  - LIP SWELLING [None]
  - PARAESTHESIA [None]
